FAERS Safety Report 7381842-X (Version None)
Quarter: 2011Q1

REPORT INFORMATION
  Report Type: 
  Country: None (occurrence: None)
  Receive Date: 20110329
  Receipt Date: 20101028
  Transmission Date: 20110831
  Serious: Yes (Hospitalization, Other)
  Sender: FDA-Public Use
  Company Number: US-BAYER-201039386NA

PATIENT
  Sex: Female
  Weight: 88.435 kg

DRUGS (3)
  1. UNCODEABLE ^UNCLASSIFIABLE^ [Concomitant]
     Dosage: UNK UNK, PRN
  2. YAZ [Suspect]
     Indication: CONTRACEPTION
     Route: 048
     Dates: start: 20080401, end: 20081001
  3. ANTIBIOTICS [Concomitant]

REACTIONS (1)
  - PULMONARY EMBOLISM [None]
